APPROVED DRUG PRODUCT: GLIPIZIDE
Active Ingredient: GLIPIZIDE
Strength: 5MG
Dosage Form/Route: TABLET;ORAL
Application: A074387 | Product #001
Applicant: ANI PHARMACEUTICALS INC
Approved: Mar 4, 1996 | RLD: No | RS: No | Type: DISCN